FAERS Safety Report 8270103-2 (Version None)
Quarter: 2012Q2

REPORT INFORMATION
  Report Type: 
  Country: None (occurrence: None)
  Receive Date: 20120410
  Receipt Date: 20120328
  Transmission Date: 20120825
  Serious: Yes (Hospitalization, Other)
  Sender: FDA-Public Use
  Company Number: PHHY2008IE27923

PATIENT
  Sex: Female

DRUGS (13)
  1. GALFER [Concomitant]
     Indication: ANAEMIA
     Dosage: 1 DF, UNK
     Route: 048
  2. CLOZARIL [Suspect]
     Route: 048
     Dates: start: 20081106, end: 20120315
  3. KWELLS [Concomitant]
     Dosage: 600 MG, UNK
     Route: 048
  4. ARIPIPRAZOLE [Concomitant]
     Indication: SCHIZOPHRENIA
     Dosage: 20 MG, UNK
     Route: 048
  5. ALENDRONIC ACID [Concomitant]
     Indication: OSTEOPENIA
     Dosage: 70 MG, UNK
     Route: 048
  6. FOLIC ACID [Concomitant]
     Indication: INADEQUATE DIET
     Dosage: 5 MG, UNK
     Route: 048
  7. ATECOR [Concomitant]
     Indication: HYPERTENSION
     Dosage: 50 MG, UNK
     Route: 048
  8. AMISULPRIDE [Concomitant]
     Indication: SCHIZOPHRENIA
     Dosage: 100 MG, UNK
     Route: 048
  9. OXYTETRACYCLINE [Concomitant]
     Indication: LOWER RESPIRATORY TRACT INFECTION
     Dosage: 1 G, UNK
     Route: 048
  10. SINGULAIR [Concomitant]
     Indication: BRONCHITIS
     Dosage: 10 MG, UNK
     Route: 048
  11. FLURAZEPAM [Concomitant]
     Indication: INSOMNIA
     Dosage: 30 MG, PRN
     Route: 048
  12. CLOZARIL [Suspect]
     Indication: SCHIZOPHRENIA
     Dosage: 300 MG, BID
     Route: 048
     Dates: start: 20020418
  13. THEOPHYLLINE [Concomitant]
     Indication: BRONCHITIS
     Dosage: 500 MG, UNK
     Route: 048

REACTIONS (7)
  - NEUTROPENIA [None]
  - DIARRHOEA [None]
  - WHITE BLOOD CELL COUNT DECREASED [None]
  - NEUTROPHIL COUNT DECREASED [None]
  - BRONCHITIS CHRONIC [None]
  - PLATELET COUNT DECREASED [None]
  - OSTEOPOROSIS [None]
